FAERS Safety Report 9548296 (Version 1)
Quarter: 2013Q3

REPORT INFORMATION
  Report Type: Spontaneous
  Country: BR (occurrence: BR)
  Receive Date: 20130924
  Receipt Date: 20130924
  Transmission Date: 20140515
  Serious: Yes (Hospitalization)
  Sender: FDA-Public Use
  Company Number: BR-ASTRAZENECA-2013SE70195

PATIENT
  Age: 682 Month
  Sex: Female
  Weight: 75 kg

DRUGS (6)
  1. SELOZOK [Suspect]
     Indication: ARRHYTHMIA
     Route: 048
  2. CRESTOR [Suspect]
     Indication: BLOOD CHOLESTEROL INCREASED
     Route: 048
  3. SOMALGIN [Concomitant]
  4. PANTOZOL [Concomitant]
     Indication: GASTRIC DISORDER
  5. MONOCORDIL [Concomitant]
  6. ESPRAN [Concomitant]
     Indication: ILL-DEFINED DISORDER

REACTIONS (1)
  - Coronary artery occlusion [Recovered/Resolved]
